FAERS Safety Report 12876293 (Version 1)
Quarter: 2016Q4

REPORT INFORMATION
  Report Type: Spontaneous
  Country: US (occurrence: US)
  Receive Date: 20161024
  Receipt Date: 20161024
  Transmission Date: 20170207
  Serious: No
  Sender: FDA-Public Use
  Company Number: US-JNJFOC-20161004546

PATIENT
  Sex: Female

DRUGS (3)
  1. SUDAFED [Suspect]
     Active Substance: PSEUDOEPHEDRINE HYDROCHLORIDE
     Route: 048
  2. SUDAFED [Suspect]
     Active Substance: PSEUDOEPHEDRINE HYDROCHLORIDE
     Indication: SINUSITIS
     Route: 048
     Dates: start: 20160926
  3. ZITHROMAX [Concomitant]
     Active Substance: AZITHROMYCIN DIHYDRATE
     Indication: SINUSITIS
     Route: 065

REACTIONS (3)
  - Insomnia [Recovering/Resolving]
  - Intentional product misuse [Unknown]
  - Intentional product use issue [Recovering/Resolving]

NARRATIVE: CASE EVENT DATE: 20160926
